FAERS Safety Report 7226097-1 (Version None)
Quarter: 2011Q1

REPORT INFORMATION
  Report Type: 
  Country: None (occurrence: None)
  Receive Date: 20110113
  Receipt Date: 20110105
  Transmission Date: 20110831
  Serious: Yes (Hospitalization, Other)
  Sender: FDA-Public Use
  Company Number: US-US-EMD SERONO, INC.-7018268

PATIENT
  Sex: Female
  Weight: 59 kg

DRUGS (2)
  1. REBIF [Suspect]
     Route: 058
     Dates: start: 20100101, end: 20110104
  2. REBIF [Suspect]
     Indication: MULTIPLE SCLEROSIS
     Route: 058
     Dates: start: 20081016, end: 20100101

REACTIONS (13)
  - PANIC ATTACK [None]
  - DEPRESSION [None]
  - INJECTION SITE REACTION [None]
  - INJECTION SITE ERYTHEMA [None]
  - PERICARDIAL EFFUSION [None]
  - WEIGHT DECREASED [None]
  - INJECTION SITE PAIN [None]
  - OESOPHAGITIS [None]
  - SUICIDAL IDEATION [None]
  - EMOTIONAL DISORDER [None]
  - INJECTION SITE SWELLING [None]
  - GASTRIC ULCER HAEMORRHAGE [None]
  - MULTIPLE SCLEROSIS RELAPSE [None]
